FAERS Safety Report 8453726-7 (Version None)
Quarter: 2012Q2

REPORT INFORMATION
  Report Type: 
  Country: None (occurrence: None)
  Receive Date: 20120620
  Receipt Date: 20120613
  Transmission Date: 20120825
  Serious: Yes (Hospitalization, Other)
  Sender: FDA-Public Use
  Company Number: DE-ACTELION-A-US2012-66742

PATIENT

DRUGS (1)
  1. VENTAVIS [Suspect]
     Indication: PULMONARY ARTERIAL HYPERTENSION
     Dosage: 5 UG, UNK
     Route: 055
     Dates: start: 20110824

REACTIONS (3)
  - PULMONARY ARTERIAL HYPERTENSION [None]
  - CONDITION AGGRAVATED [None]
  - CIRCULATORY COLLAPSE [None]
